FAERS Safety Report 13807225 (Version 2)
Quarter: 2017Q3

REPORT INFORMATION
  Report Type: Spontaneous
  Country: US (occurrence: US)
  Receive Date: 20170728
  Receipt Date: 20170809
  Transmission Date: 20171127
  Serious: Yes (Other)
  Sender: FDA-Public Use
  Company Number: US-PFIZER INC-2017326837

PATIENT
  Sex: Female

DRUGS (3)
  1. ENBREL [Suspect]
     Active Substance: ETANERCEPT
     Dosage: 50 MG, WEEKLY
  2. METHOTREXATE SODIUM. [Suspect]
     Active Substance: METHOTREXATE SODIUM
     Dosage: 25 MG, WEEKLY
  3. SULFASALAZINE. [Suspect]
     Active Substance: SULFASALAZINE
     Dosage: 1500 MG, 2X/DAY [BID]

REACTIONS (14)
  - Body mass index increased [Unknown]
  - Synovitis [Unknown]
  - Arthralgia [Unknown]
  - Tenderness [Unknown]
  - Joint stiffness [Unknown]
  - Pain [Unknown]
  - Condition aggravated [Unknown]
  - Hypertension [Unknown]
  - Fatigue [Unknown]
  - Musculoskeletal stiffness [Unknown]
  - Joint swelling [Unknown]
  - Pancreatitis [Unknown]
  - Osteoarthritis [Unknown]
  - Pleural effusion [Unknown]

NARRATIVE: CASE EVENT DATE: 201606
